FAERS Safety Report 11317146 (Version 1)
Quarter: 2015Q3

REPORT INFORMATION
  Report Type: Spontaneous
  Country: FR (occurrence: FR)
  Receive Date: 20150728
  Receipt Date: 20150728
  Transmission Date: 20151125
  Serious: Yes (Hospitalization, Other)
  Sender: FDA-Public Use
  Company Number: FR-PFIZER INC-2015245982

PATIENT
  Age: 76 Year
  Sex: Female

DRUGS (9)
  1. VOGALENE [Concomitant]
     Active Substance: METOPIMAZINE
     Dosage: UNK
  2. SERESTA [Suspect]
     Active Substance: OXAZEPAM
     Dosage: 70-80 MG DAILY
     Route: 048
     Dates: start: 201505, end: 201505
  3. SERESTA [Suspect]
     Active Substance: OXAZEPAM
     Dosage: 150 MG, DAILY
     Route: 048
     Dates: start: 201505
  4. KARDEGIC [Concomitant]
     Active Substance: ASPIRIN LYSINE
     Dosage: UNK
  5. STILNOX [Concomitant]
     Active Substance: ZOLPIDEM TARTRATE
     Dosage: UNK
  6. COAPROVEL [Concomitant]
     Active Substance: HYDROCHLOROTHIAZIDE\IRBESARTAN
     Dosage: UNK
  7. EFFEXOR LP [Suspect]
     Active Substance: VENLAFAXINE HYDROCHLORIDE
     Indication: DEPRESSION
     Dosage: 75 MG, 1X/DAY
     Route: 048
     Dates: start: 20150423
  8. SERESTA [Suspect]
     Active Substance: OXAZEPAM
     Indication: ANXIETY
     Dosage: 5 MG, 3X/DAY
     Route: 048
     Dates: end: 201505
  9. LERCAN [Concomitant]
     Active Substance: LERCANIDIPINE
     Dosage: UNK

REACTIONS (7)
  - Condition aggravated [Recovering/Resolving]
  - Tremor [Recovering/Resolving]
  - Nausea [Recovering/Resolving]
  - Vertigo [Unknown]
  - Panic attack [Recovering/Resolving]
  - Anxiety [Recovering/Resolving]
  - Orthostatic hypotension [Recovering/Resolving]

NARRATIVE: CASE EVENT DATE: 201505
